FAERS Safety Report 8141589-9 (Version None)
Quarter: 2012Q1

REPORT INFORMATION
  Report Type: 
  Country: None (occurrence: None)
  Receive Date: 20120103
  Receipt Date: 20111018
  Transmission Date: 20120608
  Serious: No
  Sender: FDA-Public Use
  Company Number: AE-2011-001447

PATIENT
  Age: 45 Year
  Sex: Female
  Weight: 102.0593 kg

DRUGS (7)
  1. INCIVEK [Suspect]
     Dosage: 2250 MG (750 MG,3 IN 1 D), ORAL
     Route: 048
     Dates: start: 20110819
  2. PEG-INTRON [Concomitant]
  3. RIBASPHERE [Concomitant]
  4. METHOCARBAMOL [Concomitant]
  5. DOXEPIN HCL [Concomitant]
  6. OXYCODONE HCL [Concomitant]
  7. VITAMIN D [Concomitant]

REACTIONS (1)
  - RASH GENERALISED [None]
